FAERS Safety Report 4838202-2 (Version None)
Quarter: 2005Q4

REPORT INFORMATION
  Report Type: 
  Country: None (occurrence: None)
  Receive Date: 20051123
  Receipt Date: 20051025
  Transmission Date: 20060501
  Serious: Yes (Death)
  Sender: FDA-Public Use
  Company Number: 2005-CZ-01021

PATIENT
  Age: 89 Year
  Sex: Female

DRUGS (8)
  1. SALBUTAMOL [Suspect]
     Route: 055
  2. CO-AMILOFRUSE  (FRUMIL) [Suspect]
     Dosage: 5/40 PER TBL, ONCE DAILY, ORAL
     Route: 048
  3. CO-COMADOL TABLETS    (PANADEINE CO) [Suspect]
     Dosage: 30/500MG/TBL, 2 PRN QDS, ORAL
     Route: 048
  4. LACTULOSE  BUVABLE (LACTULOSE) [Suspect]
     Dosage: 30/500MG/TBL, 2 PRN QDS, ORAL
     Route: 048
  5. TIOTROPIUM BROMIDE [Suspect]
  6. OXYGEN [Suspect]
     Dosage: 1360 LITRES 2 CYLINDER
     Route: 055
  7. CALCIUM D3 [Suspect]
  8. FLUTICASONE PROPIONATE W/SALMETEROL [Suspect]
     Dosage: 2 PUFFS TWICE DAILY
     Route: 055

REACTIONS (1)
  - EMPHYSEMA [None]
